FAERS Safety Report 5142915-5 (Version None)
Quarter: 2006Q4

REPORT INFORMATION
  Report Type: 
  Country: None (occurrence: None)
  Receive Date: 20061030
  Receipt Date: 20061017
  Transmission Date: 20070319
  Serious: Yes (Hospitalization)
  Sender: FDA-Public Use
  Company Number: E2090-00083-SPO-JP

PATIENT
  Age: 35 Year
  Sex: Female

DRUGS (2)
  1. ZONISAMIDE [Suspect]
     Indication: PAIN
     Dosage: ORAL
     Route: 048
  2. CORTICOSTEROID                  (CORTICOSTEROIDS) [Concomitant]

REACTIONS (8)
  - DRUG HYPERSENSITIVITY [None]
  - ERYTHEMA [None]
  - LEUKOPENIA [None]
  - LYMPHADENOPATHY [None]
  - LYMPHOCYTE STIMULATION TEST POSITIVE [None]
  - NEUTROPENIA [None]
  - PYREXIA [None]
  - RASH [None]
